FAERS Safety Report 5204078-7 (Version None)
Quarter: 2007Q1

REPORT INFORMATION
  Report Type: 
  Country: None (occurrence: None)
  Receive Date: 20070110
  Receipt Date: 20051111
  Transmission Date: 20070707
  Serious: No
  Sender: FDA-Public Use
  Company Number: US-BRISTOL-MYERS SQUIBB COMPANY-13177316

PATIENT
  Sex: Male

DRUGS (5)
  1. ABILIFY [Suspect]
     Indication: OBSESSIVE-COMPULSIVE DISORDER
     Dates: start: 20051106, end: 20051108
  2. ABILIFY [Suspect]
     Indication: DEPRESSION
     Dates: start: 20051106, end: 20051108
  3. LUVOX [Concomitant]
  4. KLONOPIN [Concomitant]
  5. SEROQUEL [Concomitant]

REACTIONS (2)
  - ABDOMINAL DISCOMFORT [None]
  - DECREASED APPETITE [None]
